FAERS Safety Report 6145909-6 (Version None)
Quarter: 2009Q2

REPORT INFORMATION
  Report Type: 
  Country: None (occurrence: None)
  Receive Date: 20090407
  Receipt Date: 20090323
  Transmission Date: 20091009
  Serious: Yes (Hospitalization)
  Sender: FDA-Public Use
  Company Number: IT-ROCHE-623067

PATIENT
  Age: 35 Year
  Sex: Female

DRUGS (8)
  1. ALL-TRANS-RETINOIC ACID [Suspect]
     Dosage: RECEIVED UNTIL COMPLETE HEMATOLOGICAL REMISSION
     Route: 065
  2. ALL-TRANS-RETINOIC ACID [Suspect]
     Dosage: RECEIVED FOR 15 DAYS FOR FIRST AND THIRD CYCLE
     Route: 065
  3. ALL-TRANS-RETINOIC ACID [Suspect]
     Dosage: MAINTENACE THERAPY
     Route: 065
  4. HEPARIN [Suspect]
     Indication: DRUG USE FOR UNKNOWN INDICATION
     Route: 065
  5. MITOXANTRONE [Suspect]
     Dosage: RECEIVED ON DAYS 1,2,3,4,5 FOR THE SECOND CYCLE
     Route: 065
  6. IDARUBICIN HCL [Suspect]
     Dosage: RECEIVED ON DAYS 2,4,6,8,
     Route: 065
  7. IDARUBICIN HCL [Suspect]
     Dosage: RECEIVED ON DAYS 1,2,3,4, AND 12 MG/M2 ON DAY 1
     Route: 065
  8. GESTODENE [Suspect]
     Indication: CONTRACEPTION
     Dosage: FORM: PILL
     Route: 048

REACTIONS (8)
  - BRAIN HERNIATION [None]
  - BRAIN OEDEMA [None]
  - HEMIPARESIS [None]
  - INTRACRANIAL VENOUS SINUS THROMBOSIS [None]
  - ISCHAEMIA [None]
  - JUGULAR VEIN THROMBOSIS [None]
  - PETECHIAE [None]
  - THROMBOSIS [None]
